FAERS Safety Report 7536627-8 (Version None)
Quarter: 2011Q2

REPORT INFORMATION
  Report Type: 
  Country: None (occurrence: None)
  Receive Date: 20110609
  Receipt Date: 20110607
  Transmission Date: 20111010
  Serious: Yes (Life-Threatening)
  Sender: FDA-Public Use
  Company Number: DK-PURDUE-GBR-2011-0008110

PATIENT
  Sex: Female
  Weight: 120 kg

DRUGS (2)
  1. CORODIL                            /00574902/ [Concomitant]
     Indication: HYPERTENSION
     Dosage: UNK
     Dates: start: 20090101, end: 20110404
  2. OXYCODONE HCL [Suspect]
     Indication: PAIN IN EXTREMITY
     Dosage: UNK, PRN
     Route: 048
     Dates: start: 20110403, end: 20110404

REACTIONS (2)
  - HYPERSENSITIVITY [None]
  - CARDIAC ARREST [None]
